FAERS Safety Report 7479460-8 (Version None)
Quarter: 2011Q2

REPORT INFORMATION
  Report Type: 
  Country: None (occurrence: None)
  Receive Date: 20110513
  Receipt Date: 20110504
  Transmission Date: 20111010
  Serious: Yes (Hospitalization, Disabling, Other)
  Sender: FDA-Public Use
  Company Number: US-BAYER-2011-021253

PATIENT
  Sex: Male

DRUGS (8)
  1. AVELOX [Suspect]
     Indication: BRONCHITIS
  2. AMLODIPINE BESYLATE [Concomitant]
     Dosage: 10 MG, UNK
  3. BENICAR HCT [Concomitant]
     Dosage: 40/12.5, QD
  4. SOMA [Concomitant]
  5. METOPROLOL SUCCINATE [Concomitant]
  6. SIMVASTATIN [Concomitant]
     Dosage: 20 MG, HS
  7. ASPIRIN [Concomitant]
  8. AVELOX [Suspect]
     Indication: SINUSITIS
     Dosage: 400 MG, QD
     Route: 048
     Dates: start: 20090330

REACTIONS (8)
  - MUSCULAR WEAKNESS [None]
  - LIMB DISCOMFORT [None]
  - INJURY [None]
  - PAIN [None]
  - ANXIETY [None]
  - TENDON RUPTURE [None]
  - TENDON DISORDER [None]
  - JOINT INJURY [None]
